FAERS Safety Report 21206756 (Version 3)
Quarter: 2022Q3

REPORT INFORMATION
  Report Type: Report from Study
  Country: US (occurrence: US)
  Receive Date: 20220812
  Receipt Date: 20220822
  Transmission Date: 20221026
  Serious: Yes (Other)
  Sender: FDA-Public Use
  Company Number: US-KADMON-US-KAD-22-00454

PATIENT
  Age: 59 Year
  Sex: Male

DRUGS (2)
  1. REZUROCK [Suspect]
     Active Substance: BELUMOSUDIL
     Indication: Graft versus host disease
     Dosage: 200 MILLIGRAM, QD; EVERY MORNING WITH BREAKFAST
     Route: 048
     Dates: start: 20211001
  2. JAKAFI [Suspect]
     Active Substance: RUXOLITINIB
     Indication: Graft versus host disease in skin
     Dosage: 5 MILLIGRAM, QD
     Route: 048
     Dates: start: 202201

REACTIONS (4)
  - Graft versus host disease in skin [Unknown]
  - Condition aggravated [Unknown]
  - Computerised tomogram thorax abnormal [Unknown]
  - Infection [Unknown]

NARRATIVE: CASE EVENT DATE: 20220401
